FAERS Safety Report 15430812 (Version 1)
Quarter: 2018Q3

REPORT INFORMATION
  Report Type: Spontaneous
  Country: US (occurrence: US)
  Receive Date: 20180926
  Receipt Date: 20180926
  Transmission Date: 20181010
  Serious: Yes (Death)
  Sender: FDA-Public Use
  Company Number: US-EXELIXIS-CABO-18016051

PATIENT
  Age: 45 Year
  Sex: Female

DRUGS (1)
  1. CABOMETYX [Suspect]
     Active Substance: CABOZANTINIB S-MALATE
     Indication: NON-SMALL CELL LUNG CANCER
     Dosage: 40 MG, UNK

REACTIONS (4)
  - Pulmonary embolism [Unknown]
  - Death [Fatal]
  - Xeroderma [Unknown]
  - Off label use [Unknown]
